FAERS Safety Report 7387079-2 (Version None)
Quarter: 2011Q1

REPORT INFORMATION
  Report Type: 
  Country: None (occurrence: None)
  Receive Date: 20110331
  Receipt Date: 20110328
  Transmission Date: 20110831
  Serious: Yes (Hospitalization)
  Sender: FDA-Public Use
  Company Number: AT-MERCK-1103AUT00025

PATIENT
  Sex: Female

DRUGS (5)
  1. HYDROCORTONE [Suspect]
     Route: 048
     Dates: start: 20110101, end: 20110201
  2. HYDROCORTONE [Suspect]
     Route: 048
     Dates: start: 20110101, end: 20110101
  3. HYDROCORTONE [Suspect]
     Route: 048
     Dates: start: 20110101, end: 20110101
  4. HYDROCORTONE [Suspect]
     Indication: ADDISON'S DISEASE
     Route: 048
     Dates: start: 20100101, end: 20110101
  5. HYDROCORTISONE [Concomitant]
     Route: 048
     Dates: start: 20110201

REACTIONS (2)
  - DRUG INEFFECTIVE [None]
  - ADRENOCORTICAL INSUFFICIENCY ACUTE [None]
